FAERS Safety Report 8506891-7 (Version None)
Quarter: 2012Q3

REPORT INFORMATION
  Report Type: 
  Country: None (occurrence: None)
  Receive Date: 20120703
  Receipt Date: 20120626
  Transmission Date: 20120928
  Serious: Yes (Hospitalization, Other)
  Sender: FDA-Public Use
  Company Number: 2012SP036133

PATIENT
  Age: 28 Year
  Sex: Female

DRUGS (1)
  1. NUVARING [Suspect]
     Indication: CONTRACEPTION
     Dosage: VAG
     Route: 067
     Dates: end: 20120401

REACTIONS (7)
  - THERMAL BURN [None]
  - GASTROINTESTINAL DISORDER [None]
  - DISEASE RECURRENCE [None]
  - PELVIC PAIN [None]
  - HISTAMINE LEVEL INCREASED [None]
  - CERVIX DISORDER [None]
  - FOOD ALLERGY [None]
